FAERS Safety Report 4965039-6 (Version None)
Quarter: 2006Q1

REPORT INFORMATION
  Report Type: 
  Country: None (occurrence: None)
  Receive Date: 20060130
  Receipt Date: 20051121
  Transmission Date: 20060701
  Serious: Yes (Hospitalization)
  Sender: FDA-Public Use
  Company Number: COT_0258_2005

PATIENT
  Age: 56 Year
  Sex: Female
  Weight: 94.8018 kg

DRUGS (5)
  1. VENTAVIS [Suspect]
     Indication: PULMONARY HYPERTENSION
     Dosage: 2.5 MCG TWICE IH
     Route: 055
     Dates: start: 20051115, end: 20051115
  2. LOVOXIL [Concomitant]
  3. WATER PILLS [Concomitant]
  4. POTASSIUM [Concomitant]
  5. SILDENAFIL [Concomitant]

REACTIONS (2)
  - COUGH [None]
  - PNEUMONIA PNEUMOCOCCAL [None]
